FAERS Safety Report 4803281-5 (Version None)
Quarter: 2005Q4

REPORT INFORMATION
  Report Type: 
  Country: None (occurrence: None)
  Receive Date: 20051019
  Receipt Date: 20051017
  Transmission Date: 20060501
  Serious: Yes (Life-Threatening, Other)
  Sender: FDA-Public Use
  Company Number: PHFR2005GB03431

PATIENT
  Age: 80 Year
  Sex: Female

DRUGS (1)
  1. MELLARIL [Suspect]
     Route: 065

REACTIONS (4)
  - CATATONIA [None]
  - EATING DISORDER [None]
  - FAECAL INCONTINENCE [None]
  - URINARY INCONTINENCE [None]
